FAERS Safety Report 24436665 (Version 1)
Quarter: 2024Q4

REPORT INFORMATION
  Report Type: Spontaneous
  Country: US (occurrence: US)
  Receive Date: 20241015
  Receipt Date: 20241015
  Transmission Date: 20250115
  Serious: Yes (Other)
  Sender: SANOFI AVENTIS
  Company Number: US-SA-2024SA294623

PATIENT
  Age: 38 Year
  Sex: Female
  Weight: 71.36 kg

DRUGS (1)
  1. DUPIXENT [Suspect]
     Active Substance: DUPILUMAB
     Indication: Asthma
     Dosage: 300 MG, QOW
     Dates: start: 2024, end: 2024

REACTIONS (2)
  - Loss of consciousness [Unknown]
  - Photophobia [Unknown]

NARRATIVE: CASE EVENT DATE: 20240101
